FAERS Safety Report 6861886-4 (Version None)
Quarter: 2010Q3

REPORT INFORMATION
  Report Type: 
  Country: None (occurrence: None)
  Receive Date: 20100721
  Receipt Date: 20100706
  Transmission Date: 20110219
  Serious: Yes (Other)
  Sender: FDA-Public Use
  Company Number: TW-MYLANLABS-2010S1011925

PATIENT
  Age: 67 Year
  Sex: Female

DRUGS (2)
  1. LORAZEPAM [Suspect]
     Indication: SEDATIVE THERAPY
     Dosage: GIVEN BY CONTINUOUS INFUSION 10 MG/HOUR
     Route: 041
  2. GALENIC /CLAVULANIC ACID/TICARCILLIN/ [Concomitant]
     Indication: PNEUMONIA
     Route: 042

REACTIONS (2)
  - METABOLIC ACIDOSIS [None]
  - OSMOLAR GAP ABNORMAL [None]
